FAERS Safety Report 9396700 (Version 1)
Quarter: 2013Q3

REPORT INFORMATION
  Report Type: Spontaneous
  Country: BR (occurrence: BR)
  Receive Date: 20130712
  Receipt Date: 20130712
  Transmission Date: 20140515
  Serious: Yes (Other)
  Sender: FDA-Public Use
  Company Number: BR-AMGEN-BRASP2013048563

PATIENT
  Age: 54 Year
  Sex: Female
  Weight: 98 kg

DRUGS (3)
  1. ENBREL [Suspect]
     Indication: PSORIATIC ARTHROPATHY
     Dosage: 50 MG,  1X/WEEK
     Route: 065
     Dates: start: 20130420
  2. ARADOIS H [Concomitant]
     Indication: BLOOD PRESSURE INCREASED
     Dosage: UNK
     Dates: start: 2010
  3. METHOTREXATE [Concomitant]
     Indication: PSORIATIC ARTHROPATHY
     Dosage: UNK
     Dates: start: 201101

REACTIONS (3)
  - Ankylosing spondylitis [Unknown]
  - Injection site pain [Unknown]
  - Injection site pruritus [Unknown]
